FAERS Safety Report 7647662-3 (Version None)
Quarter: 2011Q3

REPORT INFORMATION
  Report Type: 
  Country: None (occurrence: None)
  Receive Date: 20110801
  Receipt Date: 20110801
  Transmission Date: 20111222
  Serious: Yes (Life-Threatening, Hospitalization, Disabling)
  Sender: FDA-Public Use
  Company Number: None

PATIENT
  Age: 74 Year
  Sex: Male
  Weight: 72.574 kg

DRUGS (2)
  1. DICYCLOMINE [Suspect]
     Indication: DIVERTICULUM
     Dosage: 10 MG
     Route: 048
     Dates: start: 20110603, end: 20110613
  2. DICYCLOMINE [Suspect]
     Indication: INSOMNIA
     Dosage: 10 MG
     Route: 048
     Dates: start: 20110603, end: 20110613

REACTIONS (3)
  - ABDOMINAL DISTENSION [None]
  - DYSPNOEA [None]
  - ATRIAL FIBRILLATION [None]
